FAERS Safety Report 5805755-7 (Version None)
Quarter: 2008Q3

REPORT INFORMATION
  Report Type: 
  Country: None (occurrence: None)
  Receive Date: 20080710
  Receipt Date: 20080630
  Transmission Date: 20090109
  Serious: Yes (Hospitalization)
  Sender: FDA-Public Use
  Company Number: US-JNJFOC-20080700450

PATIENT
  Sex: Female
  Weight: 81.65 kg

DRUGS (12)
  1. DURAGESIC-100 [Suspect]
     Route: 062
  2. DURAGESIC-100 [Suspect]
     Indication: SCOLIOSIS
     Route: 062
  3. FENTANYL TRANSDERMAL SYSTEM [Suspect]
     Indication: SCOLIOSIS
     Route: 062
  4. FENTANYL TRANSDERMAL SYSTEM [Suspect]
     Route: 062
  5. FENTANYL TRANSDERMAL SYSTEM [Suspect]
     Indication: SCOLIOSIS
     Route: 062
  6. LIPITOR [Concomitant]
     Route: 048
  7. LOPRESSOR [Concomitant]
     Indication: BLOOD PRESSURE
     Route: 048
  8. NORVASC [Concomitant]
     Indication: BLOOD PRESSURE
     Route: 048
  9. MICRO-K [Concomitant]
     Indication: BLOOD POTASSIUM
     Route: 048
  10. DARVOCET-N 100 [Concomitant]
     Indication: PAIN
     Route: 048
  11. ALLEGRA [Concomitant]
     Indication: DRUG USE FOR UNKNOWN INDICATION
     Route: 048
  12. PREDNISONE TAB [Concomitant]
     Route: 048

REACTIONS (5)
  - BLOOD PRESSURE FLUCTUATION [None]
  - CONSTIPATION [None]
  - CORONARY ARTERY OCCLUSION [None]
  - FLATULENCE [None]
  - NAUSEA [None]
